FAERS Safety Report 8963777 (Version 1)
Quarter: 2012Q4

REPORT INFORMATION
  Report Type: 
  Country: BR (occurrence: BR)
  Receive Date: 20121214
  Receipt Date: 20121214
  Transmission Date: 20130627
  Serious: Yes (Hospitalization)
  Sender: FDA-Public Use
  Company Number: BR-ABBOTT-12P-020-1018742-00

PATIENT
  Sex: Female

DRUGS (2)
  1. DEPAKENE [Suspect]
     Indication: NERVOUSNESS
     Dosage: In the morning / At night
     Route: 048
     Dates: end: 201112
  2. DEPAKENE [Suspect]
     Indication: ANXIETY

REACTIONS (9)
  - Hospitalisation [Unknown]
  - Breast enlargement [Not Recovered/Not Resolved]
  - Somnolence [Not Recovered/Not Resolved]
  - Malaise [Not Recovered/Not Resolved]
  - Weight increased [Not Recovered/Not Resolved]
  - Galactorrhoea [Not Recovered/Not Resolved]
  - Aggression [Recovered/Resolved]
  - Blood prolactin increased [Not Recovered/Not Resolved]
  - Activities of daily living impaired [Unknown]
